FAERS Safety Report 18815310 (Version 1)
Quarter: 2021Q1

REPORT INFORMATION
  Report Type: Spontaneous
  Country: US (occurrence: US)
  Receive Date: 20210129
  Receipt Date: 20210129
  Transmission Date: 20210419
  Serious: No
  Sender: FDA-Public Use
  Company Number: None

PATIENT
  Age: 62 Year
  Sex: Male
  Weight: 103.42 kg

DRUGS (1)
  1. LISINOPRIL (LISINOPRIL 40MG TAB)? INCOMPLETE TRANSMISSION [Suspect]
     Active Substance: LISINOPRIL
     Indication: HYPERTENSION
     Route: 048
     Dates: start: 20170424, end: 20200924

REACTIONS (5)
  - Swelling face [None]
  - Angioedema [None]
  - Pruritus [None]
  - Genital swelling [None]
  - Peripheral swelling [None]

NARRATIVE: CASE EVENT DATE: 20200924
